FAERS Safety Report 21986108 (Version 1)
Quarter: 2023Q1

REPORT INFORMATION
  Report Type: Spontaneous
  Country: US (occurrence: US)
  Receive Date: 20230213
  Receipt Date: 20230213
  Transmission Date: 20230418
  Serious: No
  Sender: FDA-Public Use
  Company Number: US-AMGEN-USASP2023023639

PATIENT
  Age: 58 Year
  Sex: Male

DRUGS (2)
  1. MVASI [Suspect]
     Active Substance: BEVACIZUMAB-AWWB
     Indication: Rectal cancer
     Dosage: 500 MILLIGRAM(USING 1 VIAL OF 100MG AND 1 VIAL OF 400 MG) , Q3WK (EVERY 21 DAY)
     Route: 042
     Dates: end: 20221111
  2. MVASI [Suspect]
     Active Substance: BEVACIZUMAB-AWWB
     Indication: Off label use
     Dosage: UNK
     Route: 042
     Dates: start: 20221209

REACTIONS (2)
  - Off label use [Unknown]
  - Blood pressure increased [Recovered/Resolved]

NARRATIVE: CASE EVENT DATE: 20221111
